FAERS Safety Report 19672815 (Version 3)
Quarter: 2021Q3

REPORT INFORMATION
  Report Type: Report from Study
  Country: PE (occurrence: PE)
  Receive Date: 20210809
  Receipt Date: 20210907
  Transmission Date: 20211014
  Serious: No
  Sender: FDA-Public Use
  Company Number: NVSC2021PE177887

PATIENT
  Age: 13 Year
  Sex: Female
  Weight: 73 kg

DRUGS (2)
  1. OMEPRAZOLE. [Concomitant]
     Active Substance: OMEPRAZOLE
     Indication: PRODUCT USED FOR UNKNOWN INDICATION
     Dosage: 40 MG, QD
     Route: 048
  2. REVOLADE [Suspect]
     Active Substance: ELTROMBOPAG OLAMINE
     Indication: IMMUNE THROMBOCYTOPENIA
     Dosage: 50 MG, QD (TABLET)
     Route: 048
     Dates: start: 20210709

REACTIONS (3)
  - Abdominal pain upper [Unknown]
  - Gastritis [Unknown]
  - Asthenia [Unknown]

NARRATIVE: CASE EVENT DATE: 20210731
